FAERS Safety Report 12650830 (Version 1)
Quarter: 2016Q3

REPORT INFORMATION
  Report Type: Spontaneous
  Country: US (occurrence: US)
  Receive Date: 20160815
  Receipt Date: 20160815
  Transmission Date: 20161109
  Serious: No
  Sender: FDA-Public Use
  Company Number: US-JAZZ-2016-US-004876

PATIENT
  Age: 37 Year
  Sex: Female

DRUGS (22)
  1. XYREM [Suspect]
     Active Substance: SODIUM OXYBATE
     Indication: FIBROMYALGIA
     Dosage: 2.25 G, BID
     Route: 048
     Dates: start: 201412, end: 201503
  2. REMICADE [Concomitant]
     Active Substance: INFLIXIMAB
  3. ZYRTEC [Concomitant]
     Active Substance: CETIRIZINE HYDROCHLORIDE
  4. OTEZLA [Concomitant]
     Active Substance: APREMILAST
  5. SINGULAIR [Concomitant]
     Active Substance: MONTELUKAST SODIUM
  6. XYREM [Suspect]
     Active Substance: SODIUM OXYBATE
     Dosage: 3.75 G, BID
     Route: 048
     Dates: start: 201503, end: 201510
  7. LIDODERM [Concomitant]
     Active Substance: LIDOCAINE
  8. ALEVE [Concomitant]
     Active Substance: NAPROXEN SODIUM
  9. IBUPROFEN. [Concomitant]
     Active Substance: IBUPROFEN
  10. GIANVI [Concomitant]
     Active Substance: DROSPIRENONE\ETHINYL ESTRADIOL
  11. FLUOCINONIDE. [Concomitant]
     Active Substance: FLUOCINONIDE
  12. PREDNISONE. [Concomitant]
     Active Substance: PREDNISONE
  13. PROVENTIL HFA [Concomitant]
     Active Substance: ALBUTEROL SULFATE
  14. XYREM [Suspect]
     Active Substance: SODIUM OXYBATE
     Dosage: 4 G, BID
     Route: 048
     Dates: start: 201510
  15. SPIRONOLACTONE. [Concomitant]
     Active Substance: SPIRONOLACTONE
  16. MIRENA [Concomitant]
     Active Substance: LEVONORGESTREL
  17. EFFEXOR [Concomitant]
     Active Substance: VENLAFAXINE HYDROCHLORIDE
  18. MIRALAX [Concomitant]
     Active Substance: POLYETHYLENE GLYCOL 3350
  19. FLONASE [Concomitant]
     Active Substance: FLUTICASONE PROPIONATE
  20. TOPICORT [Concomitant]
     Active Substance: DESOXIMETASONE
  21. OLOPATADINE [Concomitant]
     Active Substance: OLOPATADINE
  22. XYZAL [Concomitant]
     Active Substance: LEVOCETIRIZINE DIHYDROCHLORIDE

REACTIONS (1)
  - Weight decreased [Unknown]

NARRATIVE: CASE EVENT DATE: 201511
